FAERS Safety Report 25531077 (Version 2)
Quarter: 2025Q4

REPORT INFORMATION
  Report Type: Spontaneous
  Country: US (occurrence: US)
  Receive Date: 20250708
  Receipt Date: 20251218
  Transmission Date: 20260117
  Serious: Yes (Hospitalization)
  Sender: Alora Pharma
  Company Number: US-VERTICAL PHARMACEUTICALS-2025ALO02321

PATIENT
  Sex: Female

DRUGS (4)
  1. DSUVIA [Suspect]
     Active Substance: SUFENTANIL
     Indication: Oral surgery
     Dosage: UNK
     Dates: start: 20230628
  2. DEXAMETHASONE [Suspect]
     Active Substance: DEXAMETHASONE
     Indication: Oral surgery
     Dosage: UNK
     Dates: start: 20230628
  3. VERSED [Suspect]
     Active Substance: MIDAZOLAM HYDROCHLORIDE
     Indication: Oral surgery
     Dosage: UNK
     Dates: start: 20230628
  4. PHENERGAN [Suspect]
     Active Substance: PROMETHAZINE HYDROCHLORIDE
     Indication: Oral surgery
     Dosage: UNK
     Dates: start: 20230628

REACTIONS (10)
  - Craniofacial fracture [Unknown]
  - Sedation complication [Unknown]
  - Abnormal behaviour [Unknown]
  - Procedural pain [Unknown]
  - Limb discomfort [Not Recovered/Not Resolved]
  - Feeling abnormal [Unknown]
  - Drug interaction [Unknown]
  - Unevaluable event [Unknown]
  - Drug ineffective [Unknown]
  - Product prescribing issue [Unknown]

NARRATIVE: CASE EVENT DATE: 20230628
